FAERS Safety Report 4771931-8 (Version None)
Quarter: 2005Q3

REPORT INFORMATION
  Report Type: 
  Country: None (occurrence: None)
  Receive Date: 20050916
  Receipt Date: 20050913
  Transmission Date: 20060218
  Serious: Yes (Hospitalization)
  Sender: FDA-Public Use
  Company Number: 2005-0196

PATIENT
  Age: 67 Year
  Sex: Male
  Weight: 66 kg

DRUGS (11)
  1. RANIPLEX [Suspect]
     Dosage: 1INJ SINGLE DOSE
     Route: 042
     Dates: start: 20050706, end: 20050706
  2. CETUXIMAB [Suspect]
     Dosage: 650MG PER DAY
     Route: 042
     Dates: start: 20050706, end: 20050706
  3. POLARAMINE [Concomitant]
     Dosage: 1INJ PER DAY
     Route: 042
     Dates: start: 20050706, end: 20050706
  4. SOLU-MEDROL [Concomitant]
     Dosage: 2INJ PER DAY
     Route: 042
     Dates: start: 20050706, end: 20050706
  5. DIAMICRON [Concomitant]
     Route: 048
  6. CORVASAL [Concomitant]
     Route: 048
  7. CREON [Concomitant]
     Route: 048
  8. HALDOL [Concomitant]
     Route: 048
  9. SKENAN [Concomitant]
     Route: 048
  10. DUPHALAC [Concomitant]
     Route: 048
  11. STILNOX [Concomitant]
     Route: 048

REACTIONS (4)
  - CONVULSION [None]
  - HYPOTENSION [None]
  - LOSS OF CONSCIOUSNESS [None]
  - SHOCK [None]
